FAERS Safety Report 25677785 (Version 1)
Quarter: 2025Q3

REPORT INFORMATION
  Report Type: Report from Study
  Country: CL (occurrence: CL)
  Receive Date: 20250813
  Receipt Date: 20250813
  Transmission Date: 20251021
  Serious: Yes (Hospitalization)
  Sender: ABBVIE
  Company Number: CL-ABBVIE-5926144

PATIENT
  Age: 43 Year
  Sex: Female

DRUGS (8)
  1. HUMIRA [Suspect]
     Active Substance: ADALIMUMAB
     Indication: Rheumatoid arthritis
     Dosage: FORM STRENGTH: 40 MG/0.4 ML. ?CITRATE FREE
     Route: 058
     Dates: start: 20171106
  2. CELECOXIB [Concomitant]
     Active Substance: CELECOXIB
     Indication: Rheumatoid arthritis
     Route: 048
  3. CARVEDILOL [Concomitant]
     Active Substance: CARVEDILOL
     Indication: Blood pressure management
     Route: 048
  4. LOSARTAN [Concomitant]
     Active Substance: LOSARTAN
     Indication: Blood pressure management
     Route: 048
  5. AMLODIPINE [Concomitant]
     Active Substance: AMLODIPINE BESYLATE
     Indication: Blood pressure measurement
     Route: 048
  6. HYDROXYCHLOROQUINE [Concomitant]
     Active Substance: HYDROXYCHLOROQUINE
     Indication: Rheumatoid arthritis
     Route: 048
  7. LEFLUNOMIDE [Concomitant]
     Active Substance: LEFLUNOMIDE
     Indication: Rheumatoid arthritis
     Route: 048
  8. METHOTREXATE [Concomitant]
     Active Substance: METHOTREXATE
     Indication: Rheumatoid arthritis
     Route: 058

REACTIONS (22)
  - Fibromyalgia [Not Recovered/Not Resolved]
  - Viral infection [Not Recovered/Not Resolved]
  - Herpes zoster [Recovered/Resolved]
  - Dyspnoea [Recovering/Resolving]
  - Muscular weakness [Not Recovered/Not Resolved]
  - Tracheal pain [Recovering/Resolving]
  - Confusional state [Unknown]
  - Memory impairment [Unknown]
  - Musculoskeletal disorder [Not Recovered/Not Resolved]
  - Contusion [Unknown]
  - Mental disorder [Not Recovered/Not Resolved]
  - Pain in extremity [Not Recovered/Not Resolved]
  - Musculoskeletal stiffness [Not Recovered/Not Resolved]
  - Haematoma [Not Recovered/Not Resolved]
  - Arthralgia [Unknown]
  - Limb injury [Unknown]
  - Nosocomial infection [Recovered/Resolved]
  - Hand fracture [Not Recovered/Not Resolved]
  - Disturbance in attention [Unknown]
  - Hypertension [Unknown]
  - Fatigue [Unknown]
  - Herpes zoster [Recovered/Resolved]

NARRATIVE: CASE EVENT DATE: 20240101
